FAERS Safety Report 5634551-9 (Version None)
Quarter: 2008Q1

REPORT INFORMATION
  Report Type: 
  Country: None (occurrence: None)
  Receive Date: 20080222
  Receipt Date: 20080218
  Transmission Date: 20080703
  Serious: Yes (Death)
  Sender: FDA-Public Use
  Company Number: PHEH2008US00884

PATIENT
  Age: 44 Year
  Sex: Female

DRUGS (2)
  1. PAROXETINE HCL [Concomitant]
     Dosage: 10 MG, QD
     Dates: start: 20070323, end: 20071101
  2. TEGRETOL [Suspect]
     Dosage: YEARS

REACTIONS (3)
  - HYPONATRAEMIA [None]
  - VOMITING [None]
  - WATER INTOXICATION [None]
